FAERS Safety Report 4682733-5 (Version None)
Quarter: 2005Q2

REPORT INFORMATION
  Report Type: 
  Country: None (occurrence: None)
  Receive Date: 20050602
  Receipt Date: 20050418
  Transmission Date: 20051028
  Serious: No
  Sender: FDA-Public Use
  Company Number: USA050496000

PATIENT
  Sex: Male
  Weight: 105 kg

DRUGS (2)
  1. CYMBALTA [Suspect]
     Indication: DEPRESSION
     Dosage: 30 MG DAY
     Dates: start: 20050401
  2. ZOLOFT [Concomitant]

REACTIONS (3)
  - ASTHENIA [None]
  - DECREASED APPETITE [None]
  - NAUSEA [None]
